FAERS Safety Report 9162144 (Version 1)
Quarter: 2013Q1

REPORT INFORMATION
  Report Type: Spontaneous
  Country: CA (occurrence: CA)
  Receive Date: 20130314
  Receipt Date: 20130314
  Transmission Date: 20140127
  Serious: Yes (Other)
  Sender: FDA-Public Use
  Company Number: CA-TEVA-391636USA

PATIENT
  Age: 49 Year
  Sex: Female
  Weight: 68.1 kg

DRUGS (1)
  1. SEASONALE [Suspect]
     Route: 048

REACTIONS (6)
  - Back pain [Not Recovered/Not Resolved]
  - Feeling abnormal [Not Recovered/Not Resolved]
  - Hypoaesthesia [Not Recovered/Not Resolved]
  - Urinary incontinence [Not Recovered/Not Resolved]
  - Oedema peripheral [Not Recovered/Not Resolved]
  - Vision blurred [Not Recovered/Not Resolved]
